FAERS Safety Report 10653191 (Version 3)
Quarter: 2015Q3

REPORT INFORMATION
  Report Type: Report from Study
  Country: US (occurrence: US)
  Receive Date: 20141215
  Receipt Date: 20150819
  Transmission Date: 20151125
  Serious: No
  Sender: FDA-Public Use
  Company Number: US-GILEAD-2014-0127557

PATIENT
  Age: 79 Year
  Sex: Female

DRUGS (22)
  1. TYLENOL [Concomitant]
     Active Substance: ACETAMINOPHEN
  2. STOOL SOFTENER [Concomitant]
     Active Substance: DOCUSATE CALCIUM
  3. ESTRADIOL. [Concomitant]
     Active Substance: ESTRADIOL
  4. FISH OIL [Concomitant]
     Active Substance: FISH OIL
  5. AMBRISENTAN [Suspect]
     Active Substance: AMBRISENTAN
     Indication: PULMONARY ARTERIAL HYPERTENSION
     Dosage: 10 MG, QD
     Route: 065
     Dates: start: 20130522
  6. DIGOXIN. [Concomitant]
     Active Substance: DIGOXIN
  7. VITAMIN C [Concomitant]
     Active Substance: ASCORBIC ACID
  8. CALCIUM CITRATE [Concomitant]
     Active Substance: CALCIUM CITRATE
  9. DIOVAN [Concomitant]
     Active Substance: VALSARTAN
  10. PANTOPRAZOLE [Concomitant]
     Active Substance: PANTOPRAZOLE SODIUM
  11. AMLODIPINE [Concomitant]
     Active Substance: AMLODIPINE BESYLATE
  12. REVATIO [Concomitant]
     Active Substance: SILDENAFIL CITRATE
  13. KLOR-CON [Concomitant]
     Active Substance: POTASSIUM CHLORIDE
  14. SENNA [Concomitant]
     Active Substance: SENNA LEAF\SENNOSIDES\SENNOSIDES A AND B
  15. AMBIEN [Concomitant]
     Active Substance: ZOLPIDEM TARTRATE
  16. LASIX [Concomitant]
     Active Substance: FUROSEMIDE
  17. GLUCOSAMINE CHONDROITIN            /01430901/ [Concomitant]
  18. CRESTOR [Concomitant]
     Active Substance: ROSUVASTATIN CALCIUM
  19. MULTI VITAMIN [Concomitant]
     Active Substance: VITAMINS
  20. METOPROLOL [Concomitant]
     Active Substance: METOPROLOL
  21. ZETIA [Concomitant]
     Active Substance: EZETIMIBE
  22. VITAMIN D3 [Concomitant]
     Active Substance: CHOLECALCIFEROL

REACTIONS (1)
  - Urinary tract infection [Not Recovered/Not Resolved]
